FAERS Safety Report 22915565 (Version 24)
Quarter: 2024Q3

REPORT INFORMATION
  Report Type: Report from Study
  Country: RU (occurrence: RU)
  Receive Date: 20230907
  Receipt Date: 20240710
  Transmission Date: 20241016
  Serious: Yes (Other)
  Sender: NOVARTIS
  Company Number: RU-002147023-NVSC2023RU178251

PATIENT
  Age: 1 Year
  Sex: Male
  Weight: 9.6 kg

DRUGS (4)
  1. ZOLGENSMA [Suspect]
     Active Substance: ONASEMNOGENE ABEPARVOVEC-XIOI
     Indication: Spinal muscular atrophy
     Dosage: 55 ML, ONCE/SINGLE
     Route: 041
     Dates: start: 20230728, end: 20230728
  2. PREDNISOLONE [Concomitant]
     Active Substance: PREDNISOLONE
     Indication: Product used for unknown indication
     Dosage: 2 DOSAGE FORM (TABLET, 10 MG), QD
     Route: 065
  3. ESOMEPRAZOLE [Concomitant]
     Active Substance: ESOMEPRAZOLE
     Indication: Product used for unknown indication
     Dosage: 1 DOSAGE FORM (PACKET, ONCE PER DAY 3-4 WEEK COURSES WITH 2- WEEK BREAKS, PELLETS FOR SUSPENSION)
     Route: 048
  4. CHOLECALCIFEROL [Concomitant]
     Active Substance: CHOLECALCIFEROL
     Indication: Product used for unknown indication
     Dosage: 1000 IU, QD (EVERY DAY, CONTINUOUSLY)
     Route: 065

REACTIONS (16)
  - Blood lactate dehydrogenase increased [Recovered/Resolved]
  - Blood creatinine decreased [Recovered/Resolved]
  - Mean cell haemoglobin increased [Unknown]
  - Blood alkaline phosphatase decreased [Unknown]
  - Blood creatine phosphokinase MB increased [Unknown]
  - Thrombocytopenia [Recovered/Resolved]
  - Alanine aminotransferase increased [Recovered/Resolved]
  - Aspartate aminotransferase increased [Recovered/Resolved]
  - Troponin I increased [Recovered/Resolved]
  - Blood potassium increased [Unknown]
  - Monocyte count increased [Unknown]
  - Mean cell haemoglobin concentration increased [Unknown]
  - Blood creatinine decreased [Unknown]
  - Haemoglobin increased [Unknown]
  - Alanine aminotransferase increased [Unknown]
  - Aspartate aminotransferase increased [Unknown]

NARRATIVE: CASE EVENT DATE: 20230729
